FAERS Safety Report 11340006 (Version 1)
Quarter: 2015Q3

REPORT INFORMATION
  Report Type: Spontaneous
  Country: US (occurrence: None)
  Receive Date: 20150804
  Receipt Date: 20150804
  Transmission Date: 20151125
  Serious: Yes (Disabling, Other)
  Sender: FDA-Public Use
  Company Number: None

PATIENT
  Age: 81 Year
  Sex: Female
  Weight: 61.24 kg

DRUGS (9)
  1. CIPRO [Suspect]
     Active Substance: CIPROFLOXACIN HYDROCHLORIDE
     Route: 048
  2. EFFEXOR [Concomitant]
     Active Substance: VENLAFAXINE HYDROCHLORIDE
  3. WARFARIN [Concomitant]
     Active Substance: WARFARIN
  4. TYLENOL [Concomitant]
     Active Substance: ACETAMINOPHEN
  5. METOPROLOL [Concomitant]
     Active Substance: METOPROLOL
  6. MAGNESIUM [Concomitant]
     Active Substance: MAGNESIUM
  7. ONE-A-DAY NOS [Concomitant]
     Active Substance: MINERALS\VITAMINS
  8. ZINC [Concomitant]
     Active Substance: ZINC\ZINC CHLORIDE
  9. CALCIUM [Concomitant]
     Active Substance: CALCIUM

REACTIONS (5)
  - Tendon disorder [None]
  - Nervous system disorder [None]
  - Musculoskeletal disorder [None]
  - Paralysis [None]
  - Pain [None]

NARRATIVE: CASE EVENT DATE: 20150803
